FAERS Safety Report 6836392-3 (Version None)
Quarter: 2010Q3

REPORT INFORMATION
  Report Type: 
  Country: None (occurrence: None)
  Receive Date: 20100713
  Receipt Date: 20100630
  Transmission Date: 20110219
  Serious: Yes (Death, Hospitalization, Other)
  Sender: FDA-Public Use
  Company Number: US-ELI_LILLY_AND_COMPANY-US201007000427

PATIENT
  Age: 74 Year
  Sex: Female

DRUGS (2)
  1. ZYPREXA [Suspect]
     Indication: SEDATION
     Dosage: UNK, 2/D
  2. ZYPREXA [Suspect]
     Dosage: UNK, DAILY (1/D)

REACTIONS (12)
  - ASPIRATION [None]
  - ASTHENIA [None]
  - BACK PAIN [None]
  - COMMUNICATION DISORDER [None]
  - CRYING [None]
  - DEATH [None]
  - DYSPHAGIA [None]
  - FEEDING DISORDER [None]
  - OFF LABEL USE [None]
  - ORGAN FAILURE [None]
  - PNEUMONIA [None]
  - SWELLING [None]
